FAERS Safety Report 8718004 (Version 2)
Quarter: 2012Q4

REPORT INFORMATION
  Report Type: 
  Country: US (occurrence: US)
  Receive Date: 20120810
  Receipt Date: 20121019
  Transmission Date: 20130627
  Serious: Yes (Death, Other)
  Sender: FDA-Public Use
  Company Number: US-ROCHE-1099771

PATIENT
  Sex: Female

DRUGS (2)
  1. PULMOZYME [Suspect]
     Indication: CYSTIC FIBROSIS PANCREATIC
     Route: 065
  2. PULMOZYME [Suspect]
     Indication: CYSTIC FIBROSIS

REACTIONS (2)
  - Renal failure [Fatal]
  - Hepatic failure [Fatal]
